FAERS Safety Report 15827366 (Version 3)
Quarter: 2020Q2

REPORT INFORMATION
  Report Type: Spontaneous
  Country: US (occurrence: US)
  Receive Date: 20190115
  Receipt Date: 20200604
  Transmission Date: 20200713
  Serious: No
  Sender: FDA-Public Use
  Company Number: US-SA-2019SA010344

PATIENT

DRUGS (1)
  1. DUPIXENT [Suspect]
     Active Substance: DUPILUMAB
     Indication: DERMATITIS ATOPIC
     Dosage: 300 MG, QOW
     Route: 058
     Dates: start: 20171003

REACTIONS (5)
  - Eye infection [Unknown]
  - Eye swelling [Unknown]
  - Eye pruritus [Unknown]
  - Dry eye [Unknown]
  - Ocular hyperaemia [Unknown]
